FAERS Safety Report 7636858-2 (Version None)
Quarter: 2011Q3

REPORT INFORMATION
  Report Type: 
  Country: None (occurrence: None)
  Receive Date: 20110722
  Receipt Date: 20110722
  Transmission Date: 20111222
  Serious: No
  Sender: FDA-Public Use
  Company Number: None

PATIENT
  Sex: Female
  Weight: 49.8957 kg

DRUGS (2)
  1. ALENDRONATE SODIUM [Suspect]
     Indication: OSTEOPOROSIS
     Dosage: 70 MG 1 @ WEEK BY MOUTH
     Route: 048
     Dates: start: 20080220, end: 20100813
  2. FOSAMAX [Suspect]
     Indication: OSTEOPOROSIS
     Dosage: 70MG 1 @ WEEK BY MOUTH
     Route: 048
     Dates: start: 19951201, end: 20021028

REACTIONS (2)
  - GINGIVAL DISORDER [None]
  - OSTEONECROSIS OF JAW [None]
